FAERS Safety Report 14202996 (Version 2)
Quarter: 2018Q1

REPORT INFORMATION
  Report Type: Report from Study
  Country: CA (occurrence: CA)
  Receive Date: 20171119
  Receipt Date: 20180105
  Transmission Date: 20180508
  Serious: Yes (Hospitalization, Other)
  Sender: FDA-Public Use
  Company Number: PHHY2017CA170030

PATIENT
  Age: 67 Year
  Sex: Female

DRUGS (1)
  1. ACLASTA [Suspect]
     Active Substance: ZOLEDRONIC ACID
     Indication: OSTEOPOROSIS
     Dosage: 5 MG/DL (100 ML), UNK
     Route: 042
     Dates: start: 20171123

REACTIONS (9)
  - Arthralgia [Recovered/Resolved]
  - Dysphonia [Recovered/Resolved]
  - Upper limb fracture [Recovered/Resolved]
  - Myalgia [Recovered/Resolved]
  - Hip fracture [Recovered/Resolved]
  - Fatigue [Recovered/Resolved]
  - Decreased appetite [Recovered/Resolved]
  - Infusion related reaction [Recovered/Resolved]
  - Foot fracture [Recovered/Resolved]

NARRATIVE: CASE EVENT DATE: 20171124
